FAERS Safety Report 5258704-7 (Version None)
Quarter: 2007Q1

REPORT INFORMATION
  Report Type: 
  Country: None (occurrence: None)
  Receive Date: 20070305
  Receipt Date: 20070219
  Transmission Date: 20070707
  Serious: Yes (Disabling)
  Sender: FDA-Public Use
  Company Number: S07-UKI-00930-01

PATIENT
  Age: 49 Year
  Sex: Female

DRUGS (2)
  1. CITALOPRAM HYDROBROMIDE [Suspect]
     Indication: DEPRESSION
     Dosage: 10 MG QD PO
     Route: 048
     Dates: start: 20070115, end: 20070129
  2. PREMIQUE (CONJUGATED ESTROGENS + MEDROXYPROGESTERONE ACETATE) [Concomitant]

REACTIONS (1)
  - RETINAL VEIN THROMBOSIS [None]
